FAERS Safety Report 9025517 (Version 3)
Quarter: 2013Q1

REPORT INFORMATION
  Report Type: Spontaneous
  Country: US (occurrence: US)
  Receive Date: 20130122
  Receipt Date: 20130221
  Transmission Date: 20140127
  Serious: Yes (Other)
  Sender: FDA-Public Use
  Company Number: US-CELGENEUS-163-21880-13011866

PATIENT
  Age: 81 None
  Sex: Male

DRUGS (2)
  1. REVLIMID [Suspect]
     Indication: PLASMA CELL MYELOMA
     Dosage: 5 MILLIGRAM
     Route: 048
     Dates: start: 20121213, end: 20130107
  2. PROCRIT [Concomitant]
     Indication: ANAEMIA
     Dosage: 40000
     Route: 065
     Dates: end: 20121214

REACTIONS (2)
  - Red blood cell count decreased [Recovered/Resolved]
  - Gout [Unknown]
